FAERS Safety Report 11870136 (Version 2)
Quarter: 2016Q1

REPORT INFORMATION
  Report Type: Spontaneous
  Country: MX (occurrence: MX)
  Receive Date: 20151228
  Receipt Date: 20160219
  Transmission Date: 20160526
  Serious: Yes (Death)
  Sender: FDA-Public Use
  Company Number: MX-ROCHE-1684341

PATIENT
  Sex: Male
  Weight: 60 kg

DRUGS (1)
  1. AVASTIN [Suspect]
     Active Substance: BEVACIZUMAB
     Indication: GLIOBLASTOMA MULTIFORME
     Dosage: 3 CYCLES ADMINISTERED
     Route: 042
     Dates: start: 201509, end: 20151111

REACTIONS (1)
  - Product counterfeit [Unknown]
